FAERS Safety Report 17899700 (Version 1)
Quarter: 2020Q2

REPORT INFORMATION
  Report Type: Other
  Country: KR (occurrence: KR)
  Receive Date: 20200616
  Receipt Date: 20200616
  Transmission Date: 20200714
  Serious: Yes (Hospitalization)
  Sender: FDA-Public Use
  Company Number: KR-NUVO PHARMACEUTICALS INC-2085926

PATIENT
  Age: 37 Year
  Sex: Female

DRUGS (4)
  1. THEAEFOLIUM POWDER [Suspect]
     Active Substance: TEA LEAF
     Route: 065
  2. PHENTERMINE HYDROCHLORIDE. [Suspect]
     Active Substance: PHENTERMINE HYDROCHLORIDE
     Indication: WEIGHT DECREASED
     Route: 065
  3. ORTHOSIPHON POWDER [Suspect]
     Active Substance: ORTHOSIPHON ARISTATUS LEAF
     Route: 065
  4. SAPOSHNIKOVIAE RADIX POWDER [Suspect]
     Active Substance: HERBALS
     Route: 065

REACTIONS (2)
  - Intracardiac thrombus [Recovered/Resolved]
  - Cardiomyopathy acute [Recovered/Resolved]
